FAERS Safety Report 6691992-9 (Version None)
Quarter: 2010Q2

REPORT INFORMATION
  Report Type: 
  Country: None (occurrence: None)
  Receive Date: 20100422
  Receipt Date: 20100415
  Transmission Date: 20101027
  Serious: Yes (Hospitalization)
  Sender: FDA-Public Use
  Company Number: GB-ROCHE-697944

PATIENT
  Age: 53 Year
  Sex: Female

DRUGS (6)
  1. ORLISTAT [Suspect]
     Indication: DRUG USE FOR UNKNOWN INDICATION
     Dosage: DRUG WITHDRAWN.
     Route: 065
  2. JANUVIA [Suspect]
     Indication: DRUG USE FOR UNKNOWN INDICATION
     Route: 048
  3. JANUVIA [Suspect]
     Dosage: 168 DAY, DRUG WITHDRAWN.
     Route: 048
     Dates: start: 20090107, end: 20090623
  4. GLICLAZIDE [Concomitant]
  5. LISINOPRIL [Concomitant]
  6. METFORMIN HCL [Concomitant]

REACTIONS (1)
  - PANCREATITIS ACUTE [None]
